FAERS Safety Report 24253949 (Version 1)
Quarter: 2024Q3

REPORT INFORMATION
  Report Type: Spontaneous
  Country: US (occurrence: US)
  Receive Date: 20240827
  Receipt Date: 20240827
  Transmission Date: 20241017
  Serious: No
  Sender: CALLIDITAS THERAPEUTICS
  Company Number: US-Calliditas-2024CAL01417

PATIENT
  Age: 68 Year
  Sex: Male
  Weight: 110 kg

DRUGS (2)
  1. TARPEYO [Suspect]
     Active Substance: BUDESONIDE
     Indication: IgA nephropathy
     Route: 048
     Dates: start: 20240318
  2. ATENOLOL [Concomitant]
     Active Substance: ATENOLOL
     Dosage: INCREASED TO 100MG INSTEAD OF 50MG

REACTIONS (4)
  - Blood pressure increased [Unknown]
  - Fatigue [Unknown]
  - Pain in extremity [Unknown]
  - Headache [Unknown]
